FAERS Safety Report 9713679 (Version 1)
Quarter: 2013Q4

REPORT INFORMATION
  Report Type: Spontaneous
  Country: CH (occurrence: CH)
  Receive Date: 20131126
  Receipt Date: 20131126
  Transmission Date: 20140711
  Serious: Yes (Hospitalization)
  Sender: FDA-Public Use
  Company Number: CH-BRISTOL-MYERS SQUIBB COMPANY-19828474

PATIENT
  Age: 80 Year
  Sex: Male
  Weight: 85 kg

DRUGS (10)
  1. GLUCOPHAGE [Suspect]
     Indication: DIABETES MELLITUS
     Dosage: LAST DOSE: 2011
     Route: 048
     Dates: start: 2007
  2. LYRICA [Suspect]
     Route: 048
     Dates: end: 20130615
  3. SINTROM [Concomitant]
     Dates: start: 20130615
  4. CONCOR [Concomitant]
     Route: 048
     Dates: end: 20130615
  5. APROVEL [Concomitant]
     Route: 048
     Dates: end: 20130615
  6. MODURETIC [Concomitant]
     Dosage: 1 DF: 10
     Route: 048
     Dates: end: 20130615
  7. PRAVASTATIN SODIUM [Concomitant]
     Route: 048
     Dates: end: 20130615
  8. VIDEX [Concomitant]
     Route: 048
     Dates: end: 20130615
  9. KALETRA [Concomitant]
     Route: 048
     Dates: end: 20130615
  10. LAMIVUDINE [Concomitant]
     Route: 048
     Dates: end: 20130615

REACTIONS (7)
  - Metabolic acidosis [Unknown]
  - Lactic acidosis [Recovered/Resolved]
  - Confusional state [Recovered/Resolved]
  - Renal failure [Recovering/Resolving]
  - Drug effect increased [Recovered/Resolved]
  - Urinary tract infection [Unknown]
  - Drug administration error [Recovered/Resolved]
